FAERS Safety Report 9281813 (Version 1)
Quarter: 2013Q2

REPORT INFORMATION
  Report Type: Spontaneous
  Country: US (occurrence: US)
  Receive Date: 20130510
  Receipt Date: 20130510
  Transmission Date: 20140414
  Serious: No
  Sender: FDA-Public Use
  Company Number: US-009507513-1305USA000556

PATIENT
  Age: 26 Year
  Sex: Female

DRUGS (4)
  1. NEXPLANON [Suspect]
     Indication: CONTRACEPTION
     Dosage: UNK
     Route: 059
     Dates: start: 20130201
  2. KEPPRA [Concomitant]
  3. VIMPAT [Concomitant]
  4. PROZAC [Concomitant]

REACTIONS (4)
  - Polymenorrhoea [Not Recovered/Not Resolved]
  - Menstrual disorder [Not Recovered/Not Resolved]
  - Vaginal haemorrhage [Recovered/Resolved]
  - Vaginal haemorrhage [Not Recovered/Not Resolved]
